FAERS Safety Report 5129385-8 (Version None)
Quarter: 2006Q4

REPORT INFORMATION
  Report Type: 
  Country: None (occurrence: None)
  Receive Date: 20061012
  Receipt Date: 20060927
  Transmission Date: 20070319
  Serious: Yes (Death, Hospitalization)
  Sender: FDA-Public Use
  Company Number: PHBS2006JP15029

PATIENT
  Age: 54 Year
  Sex: Male

DRUGS (2)
  1. CYCLOSPORINE [Suspect]
     Indication: ALLOGENIC BONE MARROW TRANSPLANTATION THERAPY
     Dates: start: 20010101
  2. PREDNISOLONE TAB [Suspect]
     Indication: ALLOGENIC BONE MARROW TRANSPLANTATION THERAPY
     Dosage: ORAL
     Route: 048
     Dates: start: 20010101

REACTIONS (7)
  - DEHYDRATION [None]
  - HEPATIC FAILURE [None]
  - HEPATITIS VIRAL [None]
  - HERPES SIMPLEX [None]
  - PANCYTOPENIA [None]
  - RENAL DISORDER [None]
  - RESPIRATORY FAILURE [None]
